FAERS Safety Report 5191473-8 (Version None)
Quarter: 2006Q4

REPORT INFORMATION
  Report Type: 
  Country: None (occurrence: None)
  Receive Date: 20061218
  Receipt Date: 20061211
  Transmission Date: 20070319
  Serious: Yes (Hospitalization, Other)
  Sender: FDA-Public Use
  Company Number: HQWYE888312DEC06

PATIENT
  Age: 23 Year
  Sex: Female

DRUGS (2)
  1. PREMARIN [Suspect]
     Indication: OVARIAN FAILURE
     Dosage: 0.625MG
  2. PROVERA [Suspect]
     Indication: OVARIAN FAILURE
     Dosage: 10MG CYCLIC

REACTIONS (2)
  - ANAEMIA [None]
  - UTERINE LEIOMYOMA [None]
